FAERS Safety Report 4643606-7 (Version None)
Quarter: 2005Q2

REPORT INFORMATION
  Report Type: 
  Country: None (occurrence: None)
  Receive Date: 20050425
  Receipt Date: 20050413
  Transmission Date: 20051028
  Serious: Yes (Death, Hospitalization)
  Sender: FDA-Public Use
  Company Number: US-JNJFOC-20050302203

PATIENT
  Sex: Female
  Weight: 60.78 kg

DRUGS (6)
  1. REMINYL [Suspect]
     Route: 049
  2. NAMENDA [Concomitant]
     Route: 049
  3. VIOXX [Concomitant]
     Route: 049
  4. EVISTA [Concomitant]
     Indication: HORMONE REPLACEMENT THERAPY
  5. MOBIC [Concomitant]
     Route: 065
  6. VITAMIN [Concomitant]
     Route: 065

REACTIONS (11)
  - CARDIAC ARREST [None]
  - CEREBRAL HAEMORRHAGE [None]
  - COMA [None]
  - EXTRADURAL HAEMATOMA [None]
  - FALL [None]
  - HEAD INJURY [None]
  - HEART RATE INCREASED [None]
  - LOSS OF CONSCIOUSNESS [None]
  - POSTURING [None]
  - RESPIRATORY RATE DECREASED [None]
  - SUBDURAL HAEMATOMA [None]
